FAERS Safety Report 5317677-9 (Version None)
Quarter: 2007Q2

REPORT INFORMATION
  Report Type: 
  Country: None (occurrence: None)
  Receive Date: 20070507
  Receipt Date: 20070426
  Transmission Date: 20071010
  Serious: Yes (Hospitalization, Other)
  Sender: FDA-Public Use
  Company Number: PHBS2007JP01513

PATIENT
  Age: 25 Year
  Sex: Male

DRUGS (11)
  1. GLEEVEC [Suspect]
     Indication: ACUTE LYMPHOCYTIC LEUKAEMIA RECURRENT
     Dosage: 600 MG/DAY
     Route: 048
     Dates: start: 20061225, end: 20070112
  2. GLEEVEC [Suspect]
     Dosage: 600 MG/DAY
     Route: 048
     Dates: start: 20070117
  3. DORMICUM [Suspect]
     Indication: SEDATIVE THERAPY
     Dosage: 336 MG/DAY
     Route: 042
     Dates: start: 20070110, end: 20070111
  4. DIPRIVAN [Interacting]
     Route: 042
     Dates: start: 20070122
  5. BAKTAR [Concomitant]
     Indication: INFECTION
     Dosage: 1 G/D
     Route: 048
     Dates: start: 20061223
  6. ANCOTIL [Concomitant]
     Indication: INFECTION
     Dosage: 100 MG/D
     Route: 048
     Dates: start: 20070106, end: 20070111
  7. PROBITOR [Concomitant]
     Indication: DISSEMINATED INTRAVASCULAR COAGULATION
     Dosage: 2 G/D
     Route: 042
     Dates: start: 20070109
  8. CLARUTE [Concomitant]
     Indication: HYPERTENSION
     Dosage: 100 MG/D
     Route: 042
     Dates: start: 20070109, end: 20070119
  9. ACIROVEC [Concomitant]
     Indication: INFECTION
     Dosage: 1 G/D
     Route: 042
     Dates: start: 20070106, end: 20070112
  10. AMBISOME [Concomitant]
     Indication: INFECTION
     Dosage: 250 MG/D
     Route: 042
     Dates: start: 20070106
  11. FINIBAX [Concomitant]
     Indication: INFECTION
     Dosage: 1500 MG/D
     Route: 042
     Dates: start: 20070106, end: 20070120

REACTIONS (10)
  - ALANINE AMINOTRANSFERASE INCREASED [None]
  - ASPARTATE AMINOTRANSFERASE INCREASED [None]
  - BLOOD CREATINE PHOSPHOKINASE INCREASED [None]
  - DISSEMINATED INTRAVASCULAR COAGULATION [None]
  - DRUG INTERACTION [None]
  - ENCEPHALITIS [None]
  - GENERAL PHYSICAL HEALTH DETERIORATION [None]
  - HYPERTENSION [None]
  - RHABDOMYOLYSIS [None]
  - SINUSITIS [None]
